FAERS Safety Report 4960610-X (Version None)
Quarter: 2006Q2

REPORT INFORMATION
  Report Type: 
  Country: None (occurrence: None)
  Receive Date: 20060403
  Receipt Date: 20050901
  Transmission Date: 20061013
  Serious: Yes (Death)
  Sender: FDA-Public Use
  Company Number: US-MERCK-0509USA00406

PATIENT
  Age: 67 Year
  Sex: Male
  Weight: 82 kg

DRUGS (18)
  1. VIOXX [Suspect]
     Indication: OSTEOARTHRITIS
     Route: 048
     Dates: start: 20000623, end: 20021204
  2. VIOXX [Suspect]
     Route: 048
     Dates: start: 20020623, end: 20021204
  3. VIOXX [Suspect]
     Indication: ARTHRALGIA
     Route: 048
     Dates: start: 20000623, end: 20021204
  4. VIOXX [Suspect]
     Route: 048
     Dates: start: 20020623, end: 20021204
  5. TYLENOL (CAPLET) [Concomitant]
     Route: 065
  6. TOPROL-XL [Concomitant]
     Route: 065
     Dates: start: 20010308, end: 20010401
  7. LEVOXYL [Concomitant]
     Route: 065
  8. ACCUPRIL [Concomitant]
     Route: 065
  9. CARDIZEM CD [Concomitant]
     Route: 065
     Dates: start: 20010117, end: 20021202
  10. DILTIAZEM HYDROCHLORIDE [Concomitant]
     Route: 065
  11. PROPOXYPHENE NAPSYLATE [Concomitant]
     Route: 065
  12. PRILOSEC [Concomitant]
     Route: 065
  13. AMOXICILLIN [Concomitant]
     Route: 065
  14. BIAXIN [Concomitant]
     Route: 065
  15. FLUOCINONIDE [Concomitant]
     Route: 065
  16. NORVASC [Concomitant]
     Route: 065
     Dates: start: 20010117, end: 20021204
  17. HYDROCHLOROTHIAZIDE [Concomitant]
     Route: 065
  18. METOPROLOL [Concomitant]
     Route: 065

REACTIONS (27)
  - ABDOMINAL BRUIT [None]
  - ABDOMINAL PAIN [None]
  - ANAEMIA [None]
  - CHEST DISCOMFORT [None]
  - CHEST PAIN [None]
  - CHOLELITHIASIS [None]
  - DECREASED INTEREST [None]
  - DIARRHOEA HAEMORRHAGIC [None]
  - DYSPNOEA [None]
  - ERECTILE DYSFUNCTION [None]
  - FATIGUE [None]
  - GASTRIC DISORDER [None]
  - GASTROOESOPHAGEAL REFLUX DISEASE [None]
  - HELICOBACTER INFECTION [None]
  - HYPERCHOLESTEROLAEMIA [None]
  - HYPERTENSION [None]
  - HYPERTENSIVE HEART DISEASE [None]
  - HYPOTHYROIDISM [None]
  - INJURY [None]
  - LOWER GASTROINTESTINAL HAEMORRHAGE [None]
  - MYOCARDIAL INFARCTION [None]
  - MYOCARDIAL ISCHAEMIA [None]
  - PALPITATIONS [None]
  - PEPTIC ULCER [None]
  - RECTAL HAEMORRHAGE [None]
  - RENAL ARTERY STENOSIS [None]
  - ULCER HAEMORRHAGE [None]
